FAERS Safety Report 17147679 (Version 1)
Quarter: 2019Q4

REPORT INFORMATION
  Report Type: Spontaneous
  Country: NL (occurrence: ES)
  Receive Date: 20191212
  Receipt Date: 20191212
  Transmission Date: 20200122
  Serious: Yes (Hospitalization)
  Sender: FDA-Public Use
  Company Number: ES-BAYER-2019-219991

PATIENT
  Age: 26 Year
  Sex: Female

DRUGS (1)
  1. MIRENA [Suspect]
     Active Substance: LEVONORGESTREL
     Indication: INTRAUTERINE CONTRACEPTION
     Dosage: 20 MCG/24HR, CONT
     Route: 015
     Dates: start: 20191018, end: 20191119

REACTIONS (3)
  - Eye swelling [Recovered/Resolved with Sequelae]
  - Hemianaesthesia [Recovered/Resolved with Sequelae]
  - Migraine with aura [Recovered/Resolved with Sequelae]

NARRATIVE: CASE EVENT DATE: 20191117
